FAERS Safety Report 4450462-9 (Version None)
Quarter: 2004Q3

REPORT INFORMATION
  Report Type: 
  Country: None (occurrence: None)
  Receive Date: 20040914
  Receipt Date: 20040901
  Transmission Date: 20050211
  Serious: Yes (Hospitalization)
  Sender: FDA-Public Use
  Company Number: 2003-BP-10708NB

PATIENT
  Age: 60 Year
  Sex: Male

DRUGS (9)
  1. MEXITIL (MEXILETINE HYDROCHLORIDE) (KA) [Suspect]
     Indication: POST HERPETIC NEURALGIA
     Dosage: 300 MG (100 MG), PO
     Route: 048
     Dates: start: 20031105, end: 20031203
  2. PURSENNID (TA) [Suspect]
     Indication: INSOMNIA
     Dosage: 2 ANZ, PO
     Route: 048
     Dates: start: 20031010, end: 20031207
  3. CYANOCOBALAMIN [Suspect]
     Indication: NEUROPATHY PERIPHERAL
     Dosage: 1500 MCG (500 MCG), PO
     Route: 048
     Dates: start: 20031017, end: 20031207
  4. NEUROTROPIN (ORGAN LYSATE, STANDARDIZED) (TA) [Suspect]
     Indication: NEUROPATHY PERIPHERAL
     Dosage: 3 ANZ, PO
     Route: 048
     Dates: start: 20031018, end: 20031207
  5. JUVELA NICOTINATE (TOCOPHERYL NICOTINATE) (KA) [Suspect]
     Indication: NEUROPATHY PERIPHERAL
     Dosage: 300 MG (100 MG) PO
     Route: 048
     Dates: start: 20031018, end: 20031207
  6. TRAZODONE HCL [Suspect]
     Indication: INSOMNIA
     Dosage: 50 MG (25 MG), PO
     Route: 048
     Dates: start: 20031020, end: 20031203
  7. ALPRAZOLAM [Suspect]
     Indication: INSOMNIA
     Dosage: 0.4 MG (0.4 MG), PO
     Route: 048
     Dates: start: 20031020, end: 20031203
  8. ULCERMIN (SUCRALFATE) (VER) [Suspect]
     Indication: GASTRIC ULCER
     Dosage: 2 G, PO
     Route: 048
     Dates: start: 20031118, end: 20031207
  9. FAMOTIDINE [Suspect]
     Indication: GASTRIC ULCER
     Dosage: 40 MG (20 MG), PO
     Route: 048
     Dates: start: 20031118, end: 20031207

REACTIONS (3)
  - HEPATIC FUNCTION ABNORMAL [None]
  - LYMPHOCYTE STIMULATION TEST POSITIVE [None]
  - RASH [None]
